FAERS Safety Report 7723341-9 (Version None)
Quarter: 2011Q3

REPORT INFORMATION
  Report Type: 
  Country: None (occurrence: None)
  Receive Date: 20110901
  Receipt Date: 20110901
  Transmission Date: 20111222
  Serious: Yes (Life-Threatening, Hospitalization, Other)
  Sender: FDA-Public Use
  Company Number: None

PATIENT
  Age: 71 Year
  Sex: Male
  Weight: 83.914 kg

DRUGS (2)
  1. PROLASTIN [Suspect]
     Indication: ALPHA-1 ANTI-TRYPSIN DEFICIENCY
     Dosage: 5200 MG
     Route: 041
     Dates: start: 20010301, end: 20090401
  2. PROLASTIN-C [Concomitant]
     Route: 041
     Dates: start: 20090402, end: 20110228

REACTIONS (19)
  - DIZZINESS [None]
  - FLUSHING [None]
  - LIP SWELLING [None]
  - DEAFNESS [None]
  - CHILLS [None]
  - FATIGUE [None]
  - CONFUSIONAL STATE [None]
  - VOMITING [None]
  - SWOLLEN TONGUE [None]
  - BLINDNESS [None]
  - ABDOMINAL PAIN [None]
  - LOSS OF CONSCIOUSNESS [None]
  - RASH [None]
  - OEDEMA MOUTH [None]
  - VENTRICULAR EXTRASYSTOLES [None]
  - NO THERAPEUTIC RESPONSE [None]
  - TINNITUS [None]
  - DIARRHOEA [None]
  - PHARYNGEAL OEDEMA [None]
